FAERS Safety Report 7851777-4 (Version None)
Quarter: 2011Q4

REPORT INFORMATION
  Report Type: 
  Country: None (occurrence: None)
  Receive Date: 20111013
  Receipt Date: 20110928
  Transmission Date: 20120403
  Serious: Yes (Hospitalization)
  Sender: FDA-Public Use
  Company Number: 2011028634

PATIENT
  Age: 79 Year
  Sex: Female
  Weight: 92.5338 kg

DRUGS (49)
  1. HYZAAR 50 (HYDROCHLOROTHIAZIDE W/LOSARTAN) [Concomitant]
  2. XANAX [Concomitant]
  3. PLAQUENIL [Concomitant]
  4. CIPRO [Concomitant]
  5. PROCHLORPERAZINE MALEATE [Concomitant]
  6. ASPIRIN [Concomitant]
  7. ACIDOPHILUS (LACTOBACILLUS ACIDOPHILUS) [Concomitant]
  8. HIZENTRA [Suspect]
  9. XOPENEX [Concomitant]
  10. HIZENTRA [Suspect]
  11. BONIVA [Concomitant]
  12. HYDROCODONE-HOMATROPINE SYRUP (HYDROCODONE W/HOMATROPINE) [Concomitant]
  13. CATAPRES-TTS-1 [Concomitant]
  14. METHOTREXATE [Concomitant]
  15. OXYGEN (OXYGEN) [Concomitant]
  16. POLY-IRON (POLYSACCHARIDE-IRON COMPLEX) [Concomitant]
  17. FOLIC ACID [Concomitant]
  18. PYRIDIUM (PHENAZOPYRIDINE HYDROCHLORIDE) [Concomitant]
  19. ARANESP [Concomitant]
  20. KEFLEX [Concomitant]
  21. LOVAZA [Concomitant]
  22. HIZENTRA [Concomitant]
  23. HIZENTRA [Suspect]
  24. PRILOSEC DR (OMEPRAZOLE) [Concomitant]
  25. ACETAMINOPHEN [Concomitant]
  26. LEXAPRO [Concomitant]
  27. MUCINEX [Concomitant]
  28. COZAAR [Concomitant]
  29. MULTIVITAMIN (DAILY MULTIVITAMIN) [Concomitant]
  30. COLACE (DOCUSATE SODIUM) [Concomitant]
  31. HIZENTRA [Suspect]
  32. HIZENTRA [Suspect]
  33. PRINIVIL [Concomitant]
  34. VICODIN [Concomitant]
  35. MIRALAX [Concomitant]
  36. HIZENTRA [Suspect]
  37. DIFLUCAN [Concomitant]
  38. PREDNISONE TAB [Concomitant]
  39. CALCIUM CARBONATE [Concomitant]
  40. ARANESP [Concomitant]
  41. HIZENTRA [Suspect]
     Indication: IMMUNODEFICIENCY COMMON VARIABLE
     Dosage: SEE IMAGE
     Route: 058
     Dates: start: 20110502
  42. HIZENTRA [Suspect]
     Indication: IMMUNODEFICIENCY COMMON VARIABLE
     Dosage: SEE IMAGE
     Route: 058
     Dates: start: 20110502
  43. HIZENTRA [Suspect]
     Indication: IMMUNODEFICIENCY COMMON VARIABLE
     Dosage: SEE IMAGE
     Route: 058
     Dates: start: 20110926, end: 20110926
  44. HIZENTRA [Suspect]
     Indication: IMMUNODEFICIENCY COMMON VARIABLE
     Dosage: SEE IMAGE
     Route: 058
     Dates: start: 20110710
  45. HIZENTRA [Suspect]
     Indication: IMMUNODEFICIENCY COMMON VARIABLE
     Dosage: SEE IMAGE
     Route: 058
     Dates: start: 20110710
  46. HIZENTRA [Suspect]
     Indication: IMMUNODEFICIENCY COMMON VARIABLE
     Dosage: SEE IMAGE
     Route: 058
     Dates: start: 20110803, end: 20110803
  47. HIZENTRA [Suspect]
     Indication: IMMUNODEFICIENCY COMMON VARIABLE
     Dosage: SEE IMAGE
     Route: 058
     Dates: start: 20110803, end: 20110803
  48. ONDANSETRON HCL (ONDANSETRON) [Concomitant]
  49. SPIRIVA [Concomitant]

REACTIONS (13)
  - HEART RATE INCREASED [None]
  - HYPERTENSION [None]
  - INFUSION SITE ERYTHEMA [None]
  - VOMITING [None]
  - CONTUSION [None]
  - NAUSEA [None]
  - HAEMOGLOBIN DECREASED [None]
  - ELECTROLYTE IMBALANCE [None]
  - ECCHYMOSIS [None]
  - INFUSION SITE PAIN [None]
  - HEADACHE [None]
  - FATIGUE [None]
  - OXYGEN SATURATION DECREASED [None]
